FAERS Safety Report 16847613 (Version 2)
Quarter: 2019Q4

REPORT INFORMATION
  Report Type: Other
  Country: US (occurrence: US)
  Receive Date: 20190924
  Receipt Date: 20191222
  Transmission Date: 20200122
  Serious: No
  Sender: FDA-Public Use
  Company Number: US-ACORDA-ACO_160120_2019

PATIENT
  Sex: Female

DRUGS (2)
  1. INBRIJA [Suspect]
     Active Substance: LEVODOPA
     Indication: PARKINSON^S DISEASE
     Dosage: TWO CAPSULES (84 MILLIGRAM TOTAL) UP TO FIVE TIMES PER DAY AS NEEDED
     Dates: start: 2019
  2. RYTARY [Suspect]
     Active Substance: CARBIDOPA\LEVODOPA
     Indication: PARKINSON^S DISEASE
     Dosage: UNK
     Route: 065

REACTIONS (8)
  - Dyskinesia [Not Recovered/Not Resolved]
  - Wheezing [Recovered/Resolved]
  - Wrong technique in product usage process [Unknown]
  - Therapeutic product effect variable [Unknown]
  - Condition aggravated [Unknown]
  - Choking sensation [Recovered/Resolved]
  - Cough [Recovered/Resolved]
  - Dyspnoea [Recovered/Resolved]

NARRATIVE: CASE EVENT DATE: 2019
